FAERS Safety Report 7326421-5 (Version None)
Quarter: 2011Q1

REPORT INFORMATION
  Report Type: 
  Country: None (occurrence: None)
  Receive Date: 20110223
  Receipt Date: 20110207
  Transmission Date: 20110831
  Serious: Yes (Other)
  Sender: FDA-Public Use
  Company Number: JPI-P-013815

PATIENT
  Age: 50 Year
  Sex: Female
  Weight: 54.4316 kg

DRUGS (2)
  1. XYREM [Suspect]
     Indication: SLEEP DISORDER
     Dosage: ORAL; 9 GM(4.5, 2 IN 1 D), ORAL
     Route: 048
     Dates: start: 20050101
  2. XYREM [Suspect]
     Indication: FIBROMYALGIA
     Dosage: ORAL; 9 GM(4.5, 2 IN 1 D), ORAL
     Route: 048
     Dates: start: 20050101

REACTIONS (1)
  - BREAST CANCER FEMALE [None]
